FAERS Safety Report 10005888 (Version 3)
Quarter: 2015Q4

REPORT INFORMATION
  Report Type: Spontaneous
  Country: US (occurrence: US)
  Receive Date: 20140313
  Receipt Date: 20151125
  Transmission Date: 20160304
  Serious: Yes (Life-Threatening, Hospitalization, Disabling, Other)
  Sender: FDA-Public Use
  Company Number: US-ELI_LILLY_AND_COMPANY-US201403002626

PATIENT
  Age: 54 Year
  Sex: Male
  Weight: 108.84 kg

DRUGS (24)
  1. ASPIRIN USA [Concomitant]
     Indication: PRODUCT USED FOR UNKNOWN INDICATION
     Dosage: 325 MG, QD
     Route: 065
     Dates: start: 20101014
  2. NIASPAN [Concomitant]
     Active Substance: NIACIN
     Indication: HYPERLIPIDAEMIA
     Dosage: 150 MG, QD
     Route: 048
     Dates: start: 20101014
  3. SYNTHROID [Concomitant]
     Active Substance: LEVOTHYROXINE SODIUM
     Indication: PRODUCT USED FOR UNKNOWN INDICATION
     Dosage: 88 UG, QD
     Route: 065
     Dates: start: 20101014
  4. AXIRON [Suspect]
     Active Substance: TESTOSTERONE
     Indication: ANDROGEN DEFICIENCY
     Dosage: 60 MG, QD
     Route: 061
     Dates: start: 20111010
  5. AXIRON [Suspect]
     Active Substance: TESTOSTERONE
     Dosage: 90 MG, WEEKLY (1/W)
     Route: 061
  6. ATENOLOL. [Suspect]
     Active Substance: ATENOLOL
     Indication: PRESYNCOPE
  7. AMIODARONE [Suspect]
     Active Substance: AMIODARONE
     Indication: VENTRICULAR TACHYCARDIA
     Dosage: UNK, UNKNOWN
     Route: 065
     Dates: start: 20130730
  8. VITAMIN D                          /00107901/ [Concomitant]
     Active Substance: ERGOCALCIFEROL
     Indication: PRODUCT USED FOR UNKNOWN INDICATION
     Dosage: 5000 IU, 2/W
     Route: 065
     Dates: start: 20111031
  9. AXIRON [Suspect]
     Active Substance: TESTOSTERONE
     Dosage: 90 MG, QD
     Route: 061
     Dates: start: 20130625
  10. ATENOLOL. [Suspect]
     Active Substance: ATENOLOL
     Indication: VENTRICULAR EXTRASYSTOLES
     Dosage: 25 MG, QD
     Route: 048
     Dates: start: 19990118
  11. CRESTOR [Concomitant]
     Active Substance: ROSUVASTATIN CALCIUM
     Indication: PRODUCT USED FOR UNKNOWN INDICATION
     Dosage: 40 MG, QD
     Route: 048
     Dates: start: 20101014
  12. CYMBALTA [Concomitant]
     Active Substance: DULOXETINE HYDROCHLORIDE
     Indication: DEPRESSION
     Dosage: 60 MG, UNK
     Route: 048
     Dates: start: 20101014
  13. PRADAXA [Concomitant]
     Active Substance: DABIGATRAN ETEXILATE MESYLATE
     Indication: PRODUCT USED FOR UNKNOWN INDICATION
     Dosage: 75 MG, BID
     Route: 065
     Dates: start: 20111208
  14. ANDROGEL [Suspect]
     Active Substance: TESTOSTERONE
     Indication: PRODUCT USED FOR UNKNOWN INDICATION
     Dosage: 5 G, QD
     Route: 061
     Dates: start: 20130725, end: 20131017
  15. CIALIS [Concomitant]
     Active Substance: TADALAFIL
     Indication: PRODUCT USED FOR UNKNOWN INDICATION
     Dosage: 10 MG, PRN
     Route: 048
     Dates: start: 20101014
  16. IRON [Concomitant]
     Active Substance: IRON
     Indication: PRODUCT USED FOR UNKNOWN INDICATION
     Dosage: UNK, QD
     Route: 048
     Dates: start: 20111031
  17. NITROSTAT [Concomitant]
     Active Substance: NITROGLYCERIN
     Indication: PRODUCT USED FOR UNKNOWN INDICATION
     Dosage: 0.4 MG, PRN
     Dates: start: 20130826
  18. LASIX [Suspect]
     Active Substance: FUROSEMIDE
     Dosage: UNK, UNKNOWN
     Route: 048
  19. NORPACE [Concomitant]
     Active Substance: DISOPYRAMIDE PHOSPHATE
     Indication: VENTRICULAR EXTRASYSTOLES
     Dosage: 150 MG, QD
     Route: 065
     Dates: start: 19990118
  20. WELLBUTRIN [Concomitant]
     Active Substance: BUPROPION HYDROCHLORIDE
     Indication: PRODUCT USED FOR UNKNOWN INDICATION
     Dosage: 150 MG, QD
     Route: 065
     Dates: start: 20101014
  21. MULTAQ [Concomitant]
     Active Substance: DRONEDARONE
     Indication: ATRIAL FIBRILLATION
     Dosage: 400 MG, BID
     Route: 048
     Dates: start: 20111122
  22. COREG [Concomitant]
     Active Substance: CARVEDILOL
     Indication: PRODUCT USED FOR UNKNOWN INDICATION
     Dosage: UNK, BID
     Route: 065
     Dates: start: 20130826
  23. PLAVIX [Concomitant]
     Active Substance: CLOPIDOGREL BISULFATE
     Indication: PRODUCT USED FOR UNKNOWN INDICATION
     Dosage: 75 MG, QD
     Route: 048
     Dates: start: 20130826
  24. LASIX [Suspect]
     Active Substance: FUROSEMIDE
     Indication: CARDIAC FAILURE
     Dosage: UNK, UNKNOWN
     Route: 042
     Dates: start: 20130730

REACTIONS (20)
  - Cardiac failure congestive [Not Recovered/Not Resolved]
  - Sleep apnoea syndrome [Unknown]
  - Left atrial dilatation [Unknown]
  - Ischaemic cardiomyopathy [Not Recovered/Not Resolved]
  - Atrial fibrillation [Unknown]
  - Sinus bradycardia [Unknown]
  - Hypogonadism [Unknown]
  - Ventricular tachycardia [Unknown]
  - Hyponatraemia [Unknown]
  - Cardiac arrest [Recovered/Resolved]
  - Cardiac failure acute [Unknown]
  - Ejection fraction decreased [Not Recovered/Not Resolved]
  - Coronary artery occlusion [Unknown]
  - Hypertension [Unknown]
  - Fatigue [Not Recovered/Not Resolved]
  - Respiratory failure [Recovered/Resolved]
  - Ventricular fibrillation [Unknown]
  - Acute myocardial infarction [Not Recovered/Not Resolved]
  - Coronary artery disease [Unknown]
  - Heart rate increased [Unknown]

NARRATIVE: CASE EVENT DATE: 2011
